FAERS Safety Report 7131437-8 (Version None)
Quarter: 2010Q4

REPORT INFORMATION
  Report Type: 
  Country: None (occurrence: None)
  Receive Date: 20101201
  Receipt Date: 20101119
  Transmission Date: 20110411
  Serious: Yes (Other)
  Sender: FDA-Public Use
  Company Number: PHHY2010US78823

PATIENT
  Sex: Female

DRUGS (1)
  1. FEMARA [Suspect]
     Indication: OVARIAN CANCER
     Dosage: 2.5 MG, QD
     Route: 048
     Dates: start: 20100701, end: 20100901

REACTIONS (2)
  - CARBOHYDRATE ANTIGEN 125 INCREASED [None]
  - DRUG INEFFECTIVE [None]
